FAERS Safety Report 9090292 (Version 7)
Quarter: 2015Q1

REPORT INFORMATION
  Report Type: Spontaneous
  Country: US (occurrence: US)
  Receive Date: 20130131
  Receipt Date: 20150127
  Transmission Date: 20150721
  Serious: Yes (Hospitalization, Disabling, Other)
  Sender: FDA-Public Use
  Company Number: US-009507513-1301USA014068

PATIENT
  Sex: Female
  Weight: 72.56 kg

DRUGS (1)
  1. FOSAMAX [Suspect]
     Active Substance: ALENDRONATE SODIUM
     Indication: OSTEOPOROSIS
     Dosage: 70 MG, QW
     Route: 048
     Dates: start: 2000, end: 2011

REACTIONS (26)
  - Intramedullary rod insertion [Unknown]
  - Rash [Unknown]
  - Depression [Unknown]
  - Femur fracture [Recovering/Resolving]
  - Pain in extremity [Unknown]
  - Kyphosis [Unknown]
  - Device intolerance [Recovered/Resolved]
  - Muscular weakness [Unknown]
  - Pain [Unknown]
  - Gait disturbance [Unknown]
  - Angiopathy [Unknown]
  - Spinal compression fracture [Not Recovered/Not Resolved]
  - Osteopenia [Unknown]
  - Hypercholesterolaemia [Unknown]
  - Osteoarthritis [Unknown]
  - Medical device removal [Unknown]
  - Tenosynovitis [Unknown]
  - Radiotherapy [Unknown]
  - Hypertension [Unknown]
  - Spinal osteoarthritis [Unknown]
  - Red blood cell sedimentation rate increased [Unknown]
  - Femur fracture [Recovered/Resolved]
  - Intervertebral disc protrusion [Unknown]
  - Intervertebral disc degeneration [Unknown]
  - Hypergammaglobulinaemia benign monoclonal [Unknown]
  - Myalgia [Unknown]

NARRATIVE: CASE EVENT DATE: 2005
